FAERS Safety Report 18451096 (Version 1)
Quarter: 2020Q4

REPORT INFORMATION
  Report Type: Spontaneous
  Country: US (occurrence: US)
  Receive Date: 20201102
  Receipt Date: 20201102
  Transmission Date: 20210114
  Serious: No
  Sender: FDA-Public Use
  Company Number: US-JNJFOC-20201027290

PATIENT
  Age: 32 Year
  Sex: Female
  Weight: 58.02 kg

DRUGS (1)
  1. WOMENS ROGAINE [Suspect]
     Active Substance: MINOXIDIL
     Indication: ALOPECIA
     Dosage: PROPER DOSAGE?PRODUCT WAS LAST USED ON 07-OCT-2020
     Route: 061
     Dates: start: 20200914

REACTIONS (2)
  - Application site pruritus [Recovered/Resolved]
  - Inappropriate schedule of product administration [Unknown]

NARRATIVE: CASE EVENT DATE: 20200914
